FAERS Safety Report 7519571-1 (Version None)
Quarter: 2011Q2

REPORT INFORMATION
  Report Type: 
  Country: None (occurrence: None)
  Receive Date: 20110524
  Receipt Date: 20110512
  Transmission Date: 20111010
  Serious: Yes (Life-Threatening)
  Sender: FDA-Public Use
  Company Number: 20110015USST

PATIENT
  Sex: Male

DRUGS (3)
  1. COUMADIN [Suspect]
     Indication: PULMONARY EMBOLISM
  2. COUMADIN [Suspect]
     Indication: DEEP VEIN THROMBOSIS
  3. CARNITOR [Suspect]
     Dosage: 1 GM IM
     Route: 030
     Dates: start: 20110423, end: 20110501

REACTIONS (2)
  - HAEMORRHAGE [None]
  - MUSCLE HAEMORRHAGE [None]
